FAERS Safety Report 18169488 (Version 27)
Quarter: 2024Q4

REPORT INFORMATION
  Report Type: Report from Study
  Country: US (occurrence: US)
  Receive Date: 20200819
  Receipt Date: 20241228
  Transmission Date: 20250114
  Serious: Yes (Other)
  Sender: TAKEDA
  Company Number: US-SHIRE-US202026301

PATIENT
  Sex: Male

DRUGS (5)
  1. ADVATE [Suspect]
     Active Substance: ANTIHEMOPHILIC FACTOR, HUMAN RECOMBINANT
     Indication: Haemorrhage
     Dosage: 2000 INTERNATIONAL UNIT
  2. ADVATE [Suspect]
     Active Substance: ANTIHEMOPHILIC FACTOR, HUMAN RECOMBINANT
     Dosage: 3000 INTERNATIONAL UNIT
  3. ADVATE [Suspect]
     Active Substance: ANTIHEMOPHILIC FACTOR, HUMAN RECOMBINANT
     Dosage: 3050 INTERNATIONAL UNIT
  4. ADVATE [Suspect]
     Active Substance: ANTIHEMOPHILIC FACTOR, HUMAN RECOMBINANT
     Dosage: 3000 INTERNATIONAL UNIT
  5. ADVATE [Suspect]
     Active Substance: ANTIHEMOPHILIC FACTOR, HUMAN RECOMBINANT
     Dosage: 3000 INTERNATIONAL UNIT

REACTIONS (25)
  - Mouth haemorrhage [Unknown]
  - Contusion [Unknown]
  - Haemarthrosis [Not Recovered/Not Resolved]
  - Haemorrhage [Recovered/Resolved]
  - Muscle haemorrhage [Unknown]
  - Eyelid bleeding [Recovering/Resolving]
  - Head injury [Unknown]
  - Mass [Unknown]
  - Peripheral swelling [Unknown]
  - Anger [Unknown]
  - COVID-19 [Unknown]
  - Gait disturbance [Unknown]
  - Hair growth abnormal [Unknown]
  - Tongue biting [Unknown]
  - Pain in extremity [Unknown]
  - Infusion site bruising [Unknown]
  - Insomnia [Unknown]
  - Head banging [Unknown]
  - Product compounding quality issue [Unknown]
  - Obsessive-compulsive disorder [Unknown]
  - Swelling [Unknown]
  - Agitation [Unknown]
  - Limb injury [Unknown]
  - Cough [Unknown]
  - Pyrexia [Unknown]

NARRATIVE: CASE EVENT DATE: 20170101
